FAERS Safety Report 17243249 (Version 2)
Quarter: 2020Q1

REPORT INFORMATION
  Report Type: Report from Study
  Country: IT (occurrence: IT)
  Receive Date: 20200107
  Receipt Date: 20200116
  Transmission Date: 20200409
  Serious: Yes (Hospitalization)
  Sender: FDA-Public Use
  Company Number: IT-MYLANLABS-2020M1001367

PATIENT
  Age: 55 Year
  Sex: Male

DRUGS (7)
  1. DILATREND [Concomitant]
     Active Substance: CARVEDILOL
     Dosage: UNK
  2. RANEXA [Concomitant]
     Active Substance: RANOLAZINE
     Dosage: UNK
  3. METFORMINA MYLAN [Concomitant]
     Active Substance: METFORMIN HYDROCHLORIDE
  4. TOTALIP [Concomitant]
     Active Substance: ATORVASTATIN
     Dosage: UNK
  5. CLOPIDOGREL [Suspect]
     Active Substance: CLOPIDOGREL BISULFATE
     Indication: PROPHYLAXIS
     Dosage: 75 MILLIGRAM, QD
     Route: 048
     Dates: start: 20150101, end: 20191001
  6. MONOKET [Concomitant]
     Active Substance: ISOSORBIDE MONONITRATE
     Dosage: UNK
  7. NORVASC [Concomitant]
     Active Substance: AMLODIPINE BESYLATE
     Dosage: UNK

REACTIONS (3)
  - Melaena [Recovering/Resolving]
  - Anaemia [Recovering/Resolving]
  - Intestinal ulcer [Recovering/Resolving]

NARRATIVE: CASE EVENT DATE: 20191001
